FAERS Safety Report 5395845-8 (Version None)
Quarter: 2007Q3

REPORT INFORMATION
  Report Type: 
  Country: None (occurrence: None)
  Receive Date: 20070724
  Receipt Date: 20070712
  Transmission Date: 20080115
  Serious: Yes (Death, Hospitalization)
  Sender: FDA-Public Use
  Company Number: GB-PFIZER INC-2007022661

PATIENT
  Age: 6 Year
  Sex: Female

DRUGS (6)
  1. EPIRUBICIN HYDROCHLORIDE [Suspect]
     Indication: RHABDOMYOSARCOMA
  2. CARBOPLATIN [Suspect]
     Indication: RHABDOMYOSARCOMA
  3. DACTINOMYCIN [Suspect]
  4. ETOPOSIDE [Suspect]
  5. IFOSFAMIDE [Suspect]
  6. VINCRISTINE [Suspect]
     Indication: RHABDOMYOSARCOMA

REACTIONS (1)
  - PNEUMONITIS [None]
